FAERS Safety Report 10210688 (Version 2)
Quarter: 2014Q2

REPORT INFORMATION
  Report Type: Report from Study
  Country: JP (occurrence: JP)
  Receive Date: 20140602
  Receipt Date: 20140602
  Transmission Date: 20141212
  Serious: Yes (Death)
  Sender: FDA-Public Use
  Company Number: JP-B.I. PHARMACEUTICALS,INC./RIDGEFIELD-2014-BI-19499NB

PATIENT
  Age: 87 Year
  Sex: Male
  Weight: 48 kg

DRUGS (13)
  1. PRADAXA [Suspect]
     Indication: CEREBROVASCULAR ACCIDENT PROPHYLAXIS
     Dosage: 110 MG
     Route: 050
     Dates: start: 20131128, end: 20131128
  2. PRADAXA [Suspect]
     Dosage: 220 MG
     Route: 050
     Dates: start: 20131129
  3. NEXIUM [Suspect]
     Indication: PROPHYLAXIS
     Dosage: 20 MG
     Route: 050
     Dates: start: 20131128, end: 20131219
  4. TANATRIL [Suspect]
     Indication: PROPHYLAXIS
     Dosage: 5 MG
     Route: 050
     Dates: start: 20131128, end: 20131219
  5. OLMETEC [Suspect]
     Indication: PRODUCT USED FOR UNKNOWN INDICATION
     Dosage: 20 MG
     Route: 050
     Dates: start: 20131128, end: 20131219
  6. SYMMETREL [Concomitant]
     Indication: PROPHYLAXIS
     Dosage: 100 MG
     Route: 050
     Dates: start: 20131128, end: 20131219
  7. TSUMURA HANGEKOBOKUTO [Concomitant]
     Indication: PROPHYLAXIS
     Dosage: 5 G
     Route: 050
     Dates: start: 20131128, end: 20131219
  8. SODIUM CHLORIDE [Concomitant]
     Dosage: 4 G
     Route: 050
     Dates: start: 20131205, end: 20131219
  9. GLYCYRON [Concomitant]
     Dosage: 3 ANZ
     Route: 050
     Dates: start: 20131205, end: 20131219
  10. RADICUT [Concomitant]
     Dosage: 60 MG
     Route: 042
     Dates: end: 20131205
  11. ATELEC [Concomitant]
     Dosage: 10 MG
     Route: 050
     Dates: start: 20131217, end: 20131219
  12. SODIUM CHLORIDE [Concomitant]
     Dosage: 60 ML
     Route: 042
     Dates: end: 20131129
  13. BFLUID [Concomitant]
     Dosage: 1500 ML
     Route: 042
     Dates: end: 20131129

REACTIONS (5)
  - Pneumonia aspiration [Fatal]
  - Hepatic function abnormal [Not Recovered/Not Resolved]
  - Hyponatraemia [Recovered/Resolved]
  - Wrong technique in drug usage process [Unknown]
  - Off label use [Unknown]
